FAERS Safety Report 8261268-7 (Version None)
Quarter: 2012Q2

REPORT INFORMATION
  Report Type: 
  Country: None (occurrence: None)
  Receive Date: 20120405
  Receipt Date: 20120330
  Transmission Date: 20120825
  Serious: Yes (Other)
  Sender: FDA-Public Use
  Company Number: US-JNJFOC-20120308186

PATIENT
  Sex: Female
  Weight: 72.58 kg

DRUGS (3)
  1. ENBREL [Suspect]
     Indication: PSORIASIS
     Route: 058
     Dates: start: 20091109, end: 20100511
  2. STELARA [Suspect]
     Indication: PSORIASIS
     Route: 058
     Dates: end: 20111201
  3. STELARA [Suspect]
     Route: 058
     Dates: start: 20100520

REACTIONS (1)
  - HEPATITIS C RNA INCREASED [None]
